FAERS Safety Report 17656067 (Version 1)
Quarter: 2020Q2

REPORT INFORMATION
  Report Type: Spontaneous
  Country: GB (occurrence: GB)
  Receive Date: 20200410
  Receipt Date: 20200410
  Transmission Date: 20200713
  Serious: Yes (Hospitalization)
  Sender: FDA-Public Use
  Company Number: GB-TEVA-2020-GB-1222534

PATIENT
  Age: 72 Year
  Sex: Female

DRUGS (10)
  1. BETAHISTINE [Concomitant]
     Active Substance: BETAHISTINE
     Dosage: PRN, 24 MG
     Route: 048
  2. OXYCODONE [Concomitant]
     Active Substance: OXYCODONE
     Dosage: PRN 5MG/5ML  (DOSE: 15 ML)
     Route: 048
  3. PACLITAXEL. [Suspect]
     Active Substance: PACLITAXEL
     Indication: CHEMOTHERAPY
     Dosage: 300MG/50ML, DOSE: 300 MG
     Route: 041
     Dates: start: 20191004
  4. BUDESONIDE. [Concomitant]
     Active Substance: BUDESONIDE
     Dosage: 200MICROGRAMS/DOSE, DOSE: 2DF, PUFFS, DRY POWDER
     Route: 055
  5. HYDROXOCOBALAMIN [Concomitant]
     Active Substance: HYDROXOCOBALAMIN
     Dosage: 1MG/1ML, DOSE: 1 MG
     Route: 030
  6. SIMVASTATIN. [Concomitant]
     Active Substance: SIMVASTATIN
     Dosage: 40 MG
     Route: 048
  7. ACETYLSALICYLIC ACID [Concomitant]
     Active Substance: ASPIRIN
     Dosage: 75 MG
     Route: 048
  8. LACTULOSE. [Concomitant]
     Active Substance: LACTULOSE
     Dosage: 3.1-3.7G/5ML  DOSE: 20 ML
     Route: 048
  9. CARBOPLATIN. [Suspect]
     Active Substance: CARBOPLATIN
     Indication: CHEMOTHERAPY
     Dosage: 150MG/15ML. CYCLE 4. (100 MG)
     Route: 041
     Dates: start: 20191004
  10. OMEPRAZOLE. [Concomitant]
     Active Substance: OMEPRAZOLE
     Dosage: 20 MG
     Route: 048

REACTIONS (4)
  - Lethargy [Recovering/Resolving]
  - Vision blurred [Recovering/Resolving]
  - Pyrexia [Recovered/Resolved]
  - Myalgia [Recovering/Resolving]

NARRATIVE: CASE EVENT DATE: 20191010
